FAERS Safety Report 7602664-8 (Version None)
Quarter: 2011Q3

REPORT INFORMATION
  Report Type: 
  Country: None (occurrence: None)
  Receive Date: 20110712
  Receipt Date: 20110630
  Transmission Date: 20111222
  Serious: Yes (Other)
  Sender: FDA-Public Use
  Company Number: US-ELI_LILLY_AND_COMPANY-US201107000735

PATIENT
  Sex: Female

DRUGS (1)
  1. CYMBALTA [Suspect]
     Indication: PAIN
     Dosage: 90 MG, QD

REACTIONS (6)
  - MUSCLE TWITCHING [None]
  - ROAD TRAFFIC ACCIDENT [None]
  - ORTHOPEDIC PROCEDURE [None]
  - FEMUR FRACTURE [None]
  - KNEE ARTHROPLASTY [None]
  - LIMB CRUSHING INJURY [None]
